FAERS Safety Report 6376086-4 (Version None)
Quarter: 2009Q3

REPORT INFORMATION
  Report Type: 
  Country: None (occurrence: None)
  Receive Date: 20090918
  Receipt Date: 20090907
  Transmission Date: 20100115
  Serious: Yes (Life-Threatening)
  Sender: FDA-Public Use
  Company Number: 007473

PATIENT
  Age: 61 Year
  Sex: Female

DRUGS (3)
  1. PLETAL [Suspect]
     Dosage: ORAL
     Route: 048
  2. PANALDINE  (TICLOPIDINE HYDROCHLORIDE) UNKNOWN [Suspect]
     Dosage: ORAL
     Route: 048
  3. LIPITOR [Suspect]
     Dosage: ORAL
     Route: 048

REACTIONS (1)
  - LIVER DISORDER [None]
